FAERS Safety Report 5468539-8 (Version None)
Quarter: 2007Q3

REPORT INFORMATION
  Report Type: 
  Country: None (occurrence: None)
  Receive Date: 20070926
  Receipt Date: 20070831
  Transmission Date: 20080115
  Serious: No
  Sender: FDA-Public Use
  Company Number: US-BRISTOL-MYERS SQUIBB COMPANY-13895065

PATIENT
  Age: 64 Year
  Sex: Female
  Weight: 52 kg

DRUGS (5)
  1. ORENCIA [Suspect]
  2. METHOTREXATE [Concomitant]
  3. NASONEX [Concomitant]
  4. PREDNISONE [Concomitant]
  5. HYDROCODONE BITARTRATE [Concomitant]

REACTIONS (1)
  - DIZZINESS [None]
